FAERS Safety Report 9393355 (Version 2)
Quarter: 2014Q3

REPORT INFORMATION
  Report Type: Report from Study
  Country: PL (occurrence: PL)
  Receive Date: 20130710
  Receipt Date: 20140922
  Transmission Date: 20150326
  Serious: No
  Sender: FDA-Public Use
  Company Number: PL-ROCHE-1239771

PATIENT
  Age: 41 Year
  Sex: Female
  Weight: 54 kg

DRUGS (5)
  1. TROPICAMIDE. [Concomitant]
     Active Substance: TROPICAMIDE
     Dosage: 2/DROP
     Route: 065
     Dates: start: 20130528
  2. DEXAMETHASON [Concomitant]
     Active Substance: DEXAMETHASONE
     Dosage: 1/DROP
     Route: 065
     Dates: start: 20130528
  3. VEMURAFENIB [Suspect]
     Active Substance: VEMURAFENIB
     Dosage: DATE OF LAST DOSE PRIOR TO SAE WAS 17/JUN/2012
     Route: 048
     Dates: start: 20120121
  4. VEMURAFENIB [Suspect]
     Active Substance: VEMURAFENIB
     Indication: MALIGNANT MELANOMA
     Dosage: DATE OF LAST DOSE PRIOR TO SAE WAS 12/JAN/2012
     Route: 048
     Dates: start: 20120103
  5. YELLOX [Concomitant]
     Active Substance: BROMFENAC SODIUM
     Dosage: 2/DROP
     Route: 065
     Dates: start: 20130528

REACTIONS (1)
  - Melanocytic naevus [Recovered/Resolved]

NARRATIVE: CASE EVENT DATE: 20130618
